FAERS Safety Report 24432645 (Version 1)
Quarter: 2024Q4

REPORT INFORMATION
  Report Type: Spontaneous
  Country: US (occurrence: US)
  Receive Date: 20241014
  Receipt Date: 20241014
  Transmission Date: 20250115
  Serious: Yes (Other)
  Sender: PFIZER
  Company Number: US-PFIZER INC-2020464270

PATIENT
  Age: 69 Year
  Sex: Male
  Weight: 88.435 kg

DRUGS (2)
  1. XELJANZ XR [Suspect]
     Active Substance: TOFACITINIB CITRATE
     Indication: Arthritis reactive
     Dosage: 11 MG
  2. XELJANZ XR [Suspect]
     Active Substance: TOFACITINIB CITRATE
     Indication: Rheumatoid arthritis
     Dosage: TAKE 1 TABLET BY MOUTH DAILY
     Route: 048

REACTIONS (5)
  - Retinitis pigmentosa [Unknown]
  - Arthralgia [Unknown]
  - Back pain [Unknown]
  - Joint noise [Unknown]
  - Arthritis [Unknown]
